FAERS Safety Report 25860010 (Version 1)
Quarter: 2025Q3

REPORT INFORMATION
  Report Type: Spontaneous
  Country: CN (occurrence: CN)
  Receive Date: 20250929
  Receipt Date: 20250929
  Transmission Date: 20251021
  Serious: Yes (Life-Threatening, Other)
  Sender: JOHNSON AND JOHNSON
  Company Number: CN-JNJFOC-20250941505

PATIENT
  Age: 78 Year
  Sex: Female
  Weight: 66 kg

DRUGS (2)
  1. TOLODODEKIN ALFA [Suspect]
     Active Substance: TOLODODEKIN ALFA
     Indication: Plasma cell myeloma
     Route: 041
     Dates: start: 20250725, end: 20250725
  2. SODIUM CHLORIDE [Concomitant]
     Active Substance: SODIUM CHLORIDE
     Indication: Vehicle solution use
     Route: 041
     Dates: start: 20250725, end: 20250725

REACTIONS (3)
  - Back pain [Recovered/Resolved]
  - Haematuria [Recovered/Resolved]
  - Infusion related reaction [Recovered/Resolved]
